FAERS Safety Report 9528064 (Version 4)
Quarter: 2013Q4

REPORT INFORMATION
  Report Type: Spontaneous
  Country: US (occurrence: US)
  Receive Date: 20130917
  Receipt Date: 20131112
  Transmission Date: 20140711
  Serious: Yes (Hospitalization, Disabling, Other)
  Sender: FDA-Public Use
  Company Number: US-009507513-1205USA04817

PATIENT
  Sex: Female
  Weight: 54.42 kg

DRUGS (3)
  1. FOSAMAX [Suspect]
     Indication: OSTEOPENIA
     Dosage: 70 MG, QW
     Route: 048
     Dates: start: 200004, end: 201003
  2. ALENDRONATE SODIUM [Suspect]
     Indication: OSTEOPENIA
     Dosage: 70 MG, QW
     Route: 048
     Dates: start: 201003, end: 20111231
  3. VYTORIN [Concomitant]
     Indication: BLOOD CHOLESTEROL INCREASED
     Dosage: UNK
     Route: 048
     Dates: start: 2007, end: 2010

REACTIONS (12)
  - Intramedullary rod insertion [Unknown]
  - Femur fracture [Recovered/Resolved]
  - Breast cancer [Unknown]
  - Lower limb fracture [Recovered/Resolved]
  - Hot flush [Unknown]
  - Osteoporosis [Unknown]
  - Hyperlipidaemia [Unknown]
  - Anaemia [Unknown]
  - Arthritis [Unknown]
  - Diverticulitis [Unknown]
  - Cyst removal [Unknown]
  - Bone callus excessive [Unknown]
